FAERS Safety Report 4913789-X (Version None)
Quarter: 2006Q1

REPORT INFORMATION
  Report Type: 
  Country: None (occurrence: None)
  Receive Date: 20060216
  Receipt Date: 20060209
  Transmission Date: 20060701
  Serious: Yes (Hospitalization)
  Sender: FDA-Public Use
  Company Number: FR-GLAXOSMITHKLINE-B0410858A

PATIENT
  Age: 61 Year
  Sex: Male

DRUGS (5)
  1. ZOVIRAX [Suspect]
     Indication: ENCEPHALITIS HERPES
     Dosage: 4.5UNIT PER DAY
     Route: 042
     Dates: start: 20060106, end: 20060112
  2. PERFALGAN [Concomitant]
     Indication: MYALGIA
     Dosage: 4UNIT PER DAY
     Route: 042
     Dates: start: 20060106, end: 20060110
  3. LOVENOX [Concomitant]
  4. CLONAZEPAM [Concomitant]
  5. MORPHINE SULFATE [Concomitant]

REACTIONS (5)
  - ALANINE AMINOTRANSFERASE INCREASED [None]
  - ASPARTATE AMINOTRANSFERASE INCREASED [None]
  - BLOOD ALKALINE PHOSPHATASE INCREASED [None]
  - GAMMA-GLUTAMYLTRANSFERASE INCREASED [None]
  - HEPATITIS ACUTE [None]
